FAERS Safety Report 5128765-4 (Version None)
Quarter: 2006Q4

REPORT INFORMATION
  Report Type: 
  Country: None (occurrence: None)
  Receive Date: 20061017
  Receipt Date: 20061011
  Transmission Date: 20070319
  Serious: Yes (Death)
  Sender: FDA-Public Use
  Company Number: US-MERCK-0610USA08511

PATIENT
  Age: 39 Year
  Sex: Male

DRUGS (6)
  1. DECADRON [Suspect]
     Indication: NON-HODGKIN'S LYMPHOMA STAGE I
     Route: 048
  2. METHOTREXATE [Concomitant]
     Indication: NON-HODGKIN'S LYMPHOMA STAGE I
     Route: 065
  3. BLEOMYCIN [Concomitant]
     Indication: NON-HODGKIN'S LYMPHOMA STAGE I
     Route: 065
  4. DOXORUBICIN [Concomitant]
     Indication: NON-HODGKIN'S LYMPHOMA STAGE I
     Route: 065
  5. VINCRISTINE SULFATE [Concomitant]
     Indication: NON-HODGKIN'S LYMPHOMA STAGE I
     Route: 065
  6. CYCLOPHOSPHAMIDE [Concomitant]
     Indication: NON-HODGKIN'S LYMPHOMA STAGE I
     Route: 065

REACTIONS (2)
  - PNEUMONIA [None]
  - SEPSIS [None]
